FAERS Safety Report 7869771-6 (Version None)
Quarter: 2011Q4

REPORT INFORMATION
  Report Type: 
  Country: None (occurrence: None)
  Receive Date: 20111028
  Receipt Date: 20110110
  Transmission Date: 20120403
  Serious: No
  Sender: FDA-Public Use
  Company Number: US-AMGEN-USASP2011001349

PATIENT
  Age: 39 Year
  Sex: Female

DRUGS (2)
  1. METHOTREXATE [Concomitant]
     Dates: start: 20100401
  2. ENBREL [Suspect]
     Indication: RHEUMATOID ARTHRITIS
     Dates: start: 20101101, end: 20101201

REACTIONS (7)
  - STOMATITIS [None]
  - RHINORRHOEA [None]
  - FATIGUE [None]
  - BOWEL MOVEMENT IRREGULARITY [None]
  - TONGUE BLISTERING [None]
  - PRODUCTIVE COUGH [None]
  - GLOSSITIS [None]
